FAERS Safety Report 7144769-4 (Version None)
Quarter: 2010Q4

REPORT INFORMATION
  Report Type: 
  Country: None (occurrence: None)
  Receive Date: 20101112
  Receipt Date: 20100827
  Transmission Date: 20110411
  Serious: No
  Sender: FDA-Public Use
  Company Number: 1000015980

PATIENT
  Age: 64 Year
  Sex: Female

DRUGS (9)
  1. SAVELLA [Suspect]
     Dosage: SEE IMAGE
     Route: 048
     Dates: start: 20100101, end: 20100101
  2. SAVELLA [Suspect]
     Dosage: SEE IMAGE
     Route: 048
     Dates: start: 20100101
  3. DURAGESIC-50 [Concomitant]
  4. PERCOCET [Concomitant]
  5. ROBAXIN [Concomitant]
  6. LORAZEPAM [Concomitant]
  7. VYTORIN [Concomitant]
  8. PREVACID [Concomitant]
  9. PATANASE [Concomitant]

REACTIONS (3)
  - ABDOMINAL DISCOMFORT [None]
  - DIARRHOEA [None]
  - FLATULENCE [None]
